FAERS Safety Report 25808941 (Version 3)
Quarter: 2025Q4

REPORT INFORMATION
  Report Type: Report from Study
  Country: US (occurrence: US)
  Receive Date: 20250916
  Receipt Date: 20251023
  Transmission Date: 20260117
  Serious: Yes (Other)
  Sender: MALLINCKRODT
  Company Number: US-MALLINCKRODT-MNK202505478

PATIENT
  Sex: Female

DRUGS (2)
  1. CORTICOTROPIN [Suspect]
     Active Substance: CORTICOTROPIN
     Indication: Nephrotic syndrome
     Dosage: UNKNOWN
  2. CORTICOTROPIN [Suspect]
     Active Substance: CORTICOTROPIN
     Indication: Nephrotic syndrome
     Dosage: 40 UNITS
     Route: 058

REACTIONS (13)
  - Loss of consciousness [Unknown]
  - Syncope [Unknown]
  - Nerve compression [Unknown]
  - Bone contusion [Unknown]
  - Pain in extremity [Unknown]
  - Fibrin D dimer increased [Unknown]
  - Pain [Unknown]
  - Headache [Unknown]
  - Peripheral swelling [Recovering/Resolving]
  - Withdrawal syndrome [Unknown]
  - Muscular weakness [Unknown]
  - Blood glucose increased [Unknown]
  - Drug ineffective [Unknown]
